FAERS Safety Report 6931109-6 (Version None)
Quarter: 2010Q3

REPORT INFORMATION
  Report Type: 
  Country: None (occurrence: None)
  Receive Date: 20100818
  Receipt Date: 20100809
  Transmission Date: 20110219
  Serious: Yes (Other)
  Sender: FDA-Public Use
  Company Number: US-ABBOTT-10P-163-0656158-00

PATIENT
  Sex: Male
  Weight: 136.2 kg

DRUGS (8)
  1. HUMIRA [Suspect]
     Indication: CROHN'S DISEASE
     Route: 058
  2. HUMIRA [Suspect]
     Indication: COLITIS
     Route: 058
     Dates: start: 20080101, end: 20100301
  3. SYNTHROID [Concomitant]
     Indication: HYPOTHYROIDISM
     Route: 048
  4. SYNTHROID [Concomitant]
     Indication: GOITRE
  5. FLOMAX [Concomitant]
     Indication: PROSTATOMEGALY
     Route: 048
  6. ATENOLOL [Concomitant]
     Indication: ARRHYTHMIA
     Route: 048
  7. ALLERGY INJECTIONS [Concomitant]
     Indication: HYPERSENSITIVITY
     Route: 058
  8. ASTELIN [Concomitant]
     Indication: HYPERSENSITIVITY
     Route: 045

REACTIONS (8)
  - GALLBLADDER PAIN [None]
  - HANGOVER [None]
  - JOINT SWELLING [None]
  - PROSTATOMEGALY [None]
  - SINUSITIS [None]
  - SLEEP APNOEA SYNDROME [None]
  - UMBILICAL HERNIA [None]
  - VOMITING [None]
